FAERS Safety Report 9456977 (Version 1)
Quarter: 2013Q3

REPORT INFORMATION
  Report Type: Spontaneous
  Country: RU (occurrence: RU)
  Receive Date: 20130814
  Receipt Date: 20130814
  Transmission Date: 20140515
  Serious: Yes (Death, Life-Threatening)
  Sender: FDA-Public Use
  Company Number: RU-ROCHE-1256831

PATIENT
  Age: 62 Year
  Sex: Female

DRUGS (10)
  1. HERCEPTIN [Suspect]
     Indication: BREAST CANCER
     Route: 065
  2. HERCEPTIN [Suspect]
     Route: 065
  3. XELODA [Suspect]
     Indication: BREAST CANCER
     Route: 065
  4. PACLITAXEL [Concomitant]
     Indication: BREAST CANCER
     Route: 065
  5. NAVELBINE [Concomitant]
     Indication: BREAST CANCER
     Route: 065
  6. CYCLOPHOSPHAMIDE [Concomitant]
     Indication: BREAST CANCER
     Route: 065
  7. LEUCOVORIN [Concomitant]
     Indication: BREAST CANCER
     Route: 065
  8. FLUOROURACIL [Concomitant]
     Indication: BREAST CANCER
     Route: 065
  9. ANASTROZOL [Concomitant]
     Indication: BREAST CANCER
     Route: 065
  10. LAPATINIB [Concomitant]
     Indication: BREAST CANCER
     Route: 065

REACTIONS (2)
  - Disease progression [Unknown]
  - Procedural complication [Fatal]
